FAERS Safety Report 8190193-5 (Version None)
Quarter: 2012Q1

REPORT INFORMATION
  Report Type: 
  Country: None (occurrence: None)
  Receive Date: 20120305
  Receipt Date: 20120216
  Transmission Date: 20120608
  Serious: Yes (Hospitalization)
  Sender: FDA-Public Use
  Company Number: QSC-2012-0006

PATIENT
  Age: 39 Year
  Sex: Male

DRUGS (5)
  1. NEXIUM [Concomitant]
  2. SIMVASTATIN [Concomitant]
  3. H.P. ACTHAR GEL [Suspect]
     Indication: MULTIPLE SCLEROSIS
     Dosage: 1 ML QD, SUBCUTANEOUS
     Route: 058
     Dates: start: 20110908
  4. INSULIN NPH (INSULIN ISOPHANE PORCINE) [Concomitant]
  5. LISINOPRIL [Concomitant]

REACTIONS (19)
  - PROTEINURIA [None]
  - RENAL FAILURE ACUTE [None]
  - FALL [None]
  - MITRAL VALVE INCOMPETENCE [None]
  - URINARY INCONTINENCE [None]
  - HYPERTENSIVE EMERGENCY [None]
  - TONGUE BITING [None]
  - CONFUSIONAL STATE [None]
  - HYPERGLYCAEMIA [None]
  - TRICUSPID VALVE INCOMPETENCE [None]
  - GRAND MAL CONVULSION [None]
  - TREMOR [None]
  - FAECAL INCONTINENCE [None]
  - POSTICTAL STATE [None]
  - CARDIAC FAILURE CONGESTIVE [None]
  - PULMONARY VALVE INCOMPETENCE [None]
  - SINUS TACHYCARDIA [None]
  - DIABETIC NEPHROPATHY [None]
  - FEELING ABNORMAL [None]
